FAERS Safety Report 9651884 (Version 1)
Quarter: 2013Q4

REPORT INFORMATION
  Report Type: Spontaneous
  Country: US (occurrence: US)
  Receive Date: 20131029
  Receipt Date: 20131029
  Transmission Date: 20140711
  Serious: No
  Sender: FDA-Public Use
  Company Number: US-ENDO PHARMACEUTICALS INC.-NYST20120001

PATIENT
  Age: 31 Year
  Sex: Female
  Weight: 63.56 kg

DRUGS (1)
  1. NYSTATIN SUSPENSION [Suspect]
     Indication: CANDIDA INFECTION
     Route: 048
     Dates: start: 20120125, end: 20120126

REACTIONS (2)
  - Wheezing [Unknown]
  - Chest discomfort [Unknown]
